FAERS Safety Report 19285524 (Version 2)
Quarter: 2021Q3

REPORT INFORMATION
  Report Type: Spontaneous
  Country: US (occurrence: US)
  Receive Date: 20210521
  Receipt Date: 20210705
  Transmission Date: 20211014
  Serious: No
  Sender: FDA-Public Use
  Company Number: US-TEVA-2021-US-1906493

PATIENT
  Sex: Male

DRUGS (2)
  1. CINQAIR [Suspect]
     Active Substance: RESLIZUMAB
     Route: 042
  2. COVID?19 VACCINE NOS. [Suspect]
     Active Substance: COVID-19 VACCINE NOS
     Route: 065

REACTIONS (4)
  - Pain in extremity [Unknown]
  - Ligament rupture [Unknown]
  - Paraesthesia [Unknown]
  - Scar [Unknown]
